FAERS Safety Report 11727497 (Version 1)
Quarter: 2015Q4

REPORT INFORMATION
  Report Type: Spontaneous
  Country: FR (occurrence: FR)
  Receive Date: 20151112
  Receipt Date: 20151112
  Transmission Date: 20160304
  Serious: Yes (Hospitalization)
  Sender: FDA-Public Use
  Company Number: FR-PFIZER INC-2015367239

PATIENT
  Age: 57 Year
  Sex: Female

DRUGS (19)
  1. EMEND [Suspect]
     Active Substance: APREPITANT
     Dosage: 80 MG, 1X/DAY ON D2 AND D3
     Route: 048
     Dates: start: 20150903, end: 20150904
  2. ONDANSETRON ACCORD [Suspect]
     Active Substance: ONDANSETRON
     Dosage: 8 MG, 1X/DAY
     Route: 041
     Dates: start: 20150902, end: 20150905
  3. JAMYLENE /00061602/ [Concomitant]
     Indication: CONSTIPATION
  4. PANTOPRAZOLE SODIUM. [Concomitant]
     Active Substance: PANTOPRAZOLE SODIUM
     Indication: GASTROOESOPHAGEAL REFLUX PROPHYLAXIS
     Dosage: 40 MG, 1X/DAY
     Route: 041
     Dates: start: 20150902, end: 20150910
  5. PARACETAMOL [Concomitant]
     Active Substance: ACETAMINOPHEN
     Indication: PAIN
     Route: 042
  6. METHYLPREDNISOLONE MYLAN /00049602/ [Concomitant]
     Active Substance: METHYLPREDNISOLONE SODIUM SUCCINATE
     Dosage: 60 MG, 1X/DAY
     Route: 041
     Dates: start: 20150902, end: 20150910
  7. FUROSEMIDE RENAUDIN [Suspect]
     Active Substance: FUROSEMIDE
     Dosage: 20 MG, 3X/DAY
     Route: 041
     Dates: start: 20150902, end: 20150904
  8. LODOZ [Concomitant]
     Active Substance: BISOPROLOL FUMARATE\HYDROCHLOROTHIAZIDE
     Dosage: 1 DF OF 5 MG/6.25 MG, 1X/DAY
     Route: 048
  9. UROMITEXAN [Suspect]
     Active Substance: MESNA
     Dosage: 6 G, 1X/DAY ON D1, D2, D3
     Route: 041
     Dates: start: 20150902, end: 20150904
  10. LEVOTHYROX [Concomitant]
     Active Substance: LEVOTHYROXINE
     Dosage: 50 ?G, 1X/DAY
     Route: 048
  11. LANSOYL [Concomitant]
     Active Substance: MINERAL OIL
     Indication: CONSTIPATION
  12. NORMACOL /00086101/ [Concomitant]
     Active Substance: SULFAMETHOXAZOLE\TRIMETHOPRIM
     Indication: CONSTIPATION
  13. NEULASTA [Concomitant]
     Active Substance: PEGFILGRASTIM
     Dosage: 6 G, UNK
     Dates: start: 20150906
  14. LOVENOX [Concomitant]
     Active Substance: ENOXAPARIN SODIUM
     Indication: THROMBOSIS PROPHYLAXIS
     Route: 058
  15. ADRIBLASTINE [Suspect]
     Active Substance: DOXORUBICIN
     Dosage: 37 MG, 1X/DAY ON D1, D2, D3
     Route: 041
     Dates: start: 20150902, end: 20150904
  16. EMEND [Suspect]
     Active Substance: APREPITANT
     Dosage: ON D1 125 MG, 1X/DAY
     Route: 048
     Dates: start: 20150902, end: 20150902
  17. FORLAX [Concomitant]
     Active Substance: POLYETHYLENE GLYCOL 4000
     Indication: CONSTIPATION
  18. EDUCTYL [Concomitant]
     Active Substance: POTASSIUM BITARTRATE\SODIUM BICARBONATE
     Indication: CONSTIPATION
  19. IFOSFAMIDE EG [Suspect]
     Active Substance: IFOSFAMIDE
     Dosage: 3720 MG, 1X/DAY ON D1, D2, D3
     Route: 041
     Dates: start: 20150902, end: 20150904

REACTIONS (3)
  - Encephalopathy [Recovered/Resolved]
  - Disorientation [Recovered/Resolved]
  - Confusional state [Recovered/Resolved]

NARRATIVE: CASE EVENT DATE: 20150905
